FAERS Safety Report 5598219-X (Version None)
Quarter: 2008Q1

REPORT INFORMATION
  Report Type: 
  Country: None (occurrence: None)
  Receive Date: 20080117
  Receipt Date: 20080117
  Transmission Date: 20080703
  Serious: Yes (Life-Threatening, Hospitalization)
  Sender: FDA-Public Use
  Company Number: None

PATIENT
  Age: 66 Year
  Sex: Female
  Weight: 70.7611 kg

DRUGS (1)
  1. LABETALOL HCL [Suspect]
     Indication: BLOOD PRESSURE
     Dosage: 200MG  3 TIMESDAILLY  PO
     Route: 048
     Dates: start: 20071107, end: 20071112

REACTIONS (1)
  - CARDIAC FAILURE CONGESTIVE [None]
